FAERS Safety Report 15456989 (Version 2)
Quarter: 2018Q4

REPORT INFORMATION
  Report Type: Spontaneous
  Country: US (occurrence: US)
  Receive Date: 20181002
  Receipt Date: 20181114
  Transmission Date: 20190204
  Serious: Yes (Hospitalization, Other)
  Sender: FDA-Public Use
  Company Number: US-SAOL THERAPEUTICS-2018SAO01021

PATIENT
  Age: 27 Year
  Sex: Male

DRUGS (18)
  1. MELATONIN ER [Concomitant]
     Dosage: 1 TO 3 MG, AS NEEDED
     Route: 048
  2. PSYLLIUM [Concomitant]
     Active Substance: PLANTAGO SEED
     Dosage: 0.52 G, 2X/DAY
     Route: 048
  3. SYSTANE (HYPROMELLOSE 2910 (4000 MPA.S)) [Concomitant]
     Active Substance: HYPROMELLOSE 2910 (4000 MPA.S)
     Dosage: UNK UNK, UP TO 3X/DAY
  4. LEVETIRACETAM. [Concomitant]
     Active Substance: LEVETIRACETAM
     Dosage: 2 TABLETS, 2X/DAY
     Route: 048
  5. POLYETHYLENE GLYCOL PACK [Concomitant]
     Dosage: 1 PACKET, 1X/DAY
     Route: 048
  6. TAMSULOSIN HYDROCHLORIDE. [Concomitant]
     Active Substance: TAMSULOSIN HYDROCHLORIDE
     Dosage: 0.4 MG, 1X/DAY
     Route: 048
  7. ETHYL CHLORIDE [Concomitant]
     Active Substance: ETHYL CHLORIDE
     Dosage: 1 SPRAY, AS DIRECTED
     Route: 061
  8. MULTIPLE MINERALS-VITAMINS [Concomitant]
     Dosage: 2 TABLETS, 2X/DAY
     Route: 048
  9. CARBAMAZEPINE. [Concomitant]
     Active Substance: CARBAMAZEPINE
     Dosage: 1.5 TABLETS, 2X/DAY
     Route: 048
  10. LORAZEPAM. [Concomitant]
     Active Substance: LORAZEPAM
     Dosage: 1 MG, 4X/DAY
     Route: 048
  11. OMEGA 3 FATTY ACIDS (FISH OIL) [Concomitant]
     Dosage: 1000 MG, 1X/DAY IN THE MORNING
     Route: 048
  12. LIORESAL [Suspect]
     Active Substance: BACLOFEN
     Indication: QUADRIPARESIS
     Dosage: UNK
     Route: 037
     Dates: start: 20101228
  13. GARDEN OF LIFE OCEANS 3 NUTRITIONAL SUPPLEMENT [Concomitant]
     Dosage: 2 CAPSULES, 1X/DAY
     Route: 048
  14. DIPHENHYDRAMINE. [Concomitant]
     Active Substance: DIPHENHYDRAMINE
     Dosage: 25 MG, AS NEEDED
     Route: 048
  15. LIORESAL [Suspect]
     Active Substance: BACLOFEN
     Dosage: 730 ?G, \DAY
     Route: 037
  16. ACETAMINOPHEN. [Concomitant]
     Active Substance: ACETAMINOPHEN
     Dosage: 650 MG, 4X/DAY
     Route: 048
  17. BENZONATATE. [Concomitant]
     Active Substance: BENZONATATE
     Dosage: 150 MG, 3X/DAY AS NEEDED
     Route: 048
  18. ENEMEEZ PLUS [Concomitant]
     Active Substance: BENZOCAINE\DOCUSATE SODIUM
     Dosage: UNK, 1X/DAY
     Route: 054

REACTIONS (6)
  - Drug withdrawal syndrome [Recovered/Resolved]
  - Urinary tract infection [Recovered/Resolved]
  - Blood creatine phosphokinase increased [Recovered/Resolved]
  - Seizure [Recovered/Resolved]
  - Enterococcus test positive [Recovered/Resolved]
  - Pseudomonas test positive [Recovered/Resolved]

NARRATIVE: CASE EVENT DATE: 20180823
